FAERS Safety Report 9010102 (Version 1)
Quarter: 2013Q1

REPORT INFORMATION
  Report Type: Spontaneous
  Country: US (occurrence: US)
  Receive Date: 20130110
  Receipt Date: 20130110
  Transmission Date: 20140127
  Serious: Yes (Disabling, Other)
  Sender: FDA-Public Use
  Company Number: US-009507513-1301USA001861

PATIENT
  Age: 65 Year
  Sex: Male

DRUGS (4)
  1. SINGULAIR [Suspect]
     Indication: ASTHMA
  2. SPIRIVA [Suspect]
  3. BUDESONIDE (+) FORMOTEROL FUMARATE [Suspect]
  4. PULMICORT [Suspect]

REACTIONS (3)
  - Asphyxia [Unknown]
  - Dysphonia [Unknown]
  - Dysphagia [Unknown]
